FAERS Safety Report 14123679 (Version 3)
Quarter: 2018Q4

REPORT INFORMATION
  Report Type: Spontaneous
  Country: US (occurrence: US)
  Receive Date: 20171025
  Receipt Date: 20181108
  Transmission Date: 20190204
  Serious: Yes (Hospitalization, Other)
  Sender: FDA-Public Use
  Company Number: US-BIOVITRUM-2017US0969

PATIENT
  Age: 22 Month
  Sex: Female

DRUGS (4)
  1. ANAKINRA [Suspect]
     Active Substance: ANAKINRA
     Indication: STILL^S DISEASE
  2. PREDNISOLONE. [Suspect]
     Active Substance: PREDNISOLONE
     Indication: HAEMOPHAGOCYTIC LYMPHOHISTIOCYTOSIS
  3. ANAKINRA [Suspect]
     Active Substance: ANAKINRA
     Indication: HAEMOPHAGOCYTIC LYMPHOHISTIOCYTOSIS
     Route: 058
  4. CYCLOSPORINE. [Suspect]
     Active Substance: CYCLOSPORINE
     Indication: HAEMOPHAGOCYTIC LYMPHOHISTIOCYTOSIS

REACTIONS (19)
  - Still^s disease [Unknown]
  - Tracheomalacia [Unknown]
  - Inflammation [Unknown]
  - Hospitalisation [Unknown]
  - Respiratory syncytial virus infection [Unknown]
  - Interstitial lung disease [Unknown]
  - Alveolar lung disease [Unknown]
  - Sleep apnoea syndrome [Unknown]
  - Laryngomalacia [Unknown]
  - Pleural effusion [Unknown]
  - Tachypnoea [Unknown]
  - Clubbing [Unknown]
  - Hypoxia [Unknown]
  - Lower respiratory tract inflammation [Unknown]
  - Pulmonary granuloma [Unknown]
  - Lung disorder [Unknown]
  - Alveolar proteinosis [Unknown]
  - Snoring [Unknown]
  - Hyperplasia [Unknown]
